FAERS Safety Report 5465311-X (Version None)
Quarter: 2007Q3

REPORT INFORMATION
  Report Type: 
  Country: None (occurrence: None)
  Receive Date: 20070919
  Receipt Date: 20070919
  Transmission Date: 20080115
  Serious: Yes (Hospitalization)
  Sender: FDA-Public Use
  Company Number: None

PATIENT
  Age: 43 Year
  Sex: Female
  Weight: 70.1261 kg

DRUGS (2)
  1. TARCEVA [Suspect]
     Indication: LUNG NEOPLASM MALIGNANT
     Dosage: 150MG PO DAILY
     Route: 048
     Dates: start: 20070702, end: 20070810
  2. TARCEVA [Suspect]
     Indication: METASTASES TO CENTRAL NERVOUS SYSTEM
     Dosage: 150MG PO DAILY
     Route: 048
     Dates: start: 20070702, end: 20070810

REACTIONS (13)
  - CELLULITIS [None]
  - CHILLS [None]
  - DIARRHOEA [None]
  - HAEMOPTYSIS [None]
  - HEADACHE [None]
  - HYPERHIDROSIS [None]
  - HYPOXIA [None]
  - LUNG ADENOCARCINOMA [None]
  - METASTASES TO CENTRAL NERVOUS SYSTEM [None]
  - PLEURAL EFFUSION [None]
  - POSITRON EMISSION TOMOGRAM ABNORMAL [None]
  - PULMONARY HILUM MASS [None]
  - RASH [None]
